FAERS Safety Report 10023158 (Version 3)
Quarter: 2014Q3

REPORT INFORMATION
  Report Type: Spontaneous
  Country: GB (occurrence: GB)
  Receive Date: 20140320
  Receipt Date: 20140825
  Transmission Date: 20150326
  Serious: Yes (Life-Threatening, Hospitalization, Other)
  Sender: FDA-Public Use
  Company Number: GB-JNJFOC-20140309771

PATIENT
  Age: 56 Year
  Sex: Male
  Weight: 80 kg

DRUGS (10)
  1. OMEPRAZOLE. [Concomitant]
     Active Substance: OMEPRAZOLE
     Route: 065
  2. DAKTARIN [Suspect]
     Active Substance: MICONAZOLE NITRATE
     Indication: ORAL CANDIDIASIS
     Dosage: DOSE 2.5 AND CUMULATIVE DOSE 120
     Route: 048
     Dates: start: 20140207, end: 20140214
  3. SYMBICORT [Concomitant]
     Active Substance: BUDESONIDE\FORMOTEROL FUMARATE DIHYDRATE
     Route: 065
  4. DAKTARIN [Suspect]
     Active Substance: MICONAZOLE NITRATE
     Route: 048
  5. BISOPROLOL [Concomitant]
     Active Substance: BISOPROLOL
     Route: 065
  6. SPIROLACTONE [Concomitant]
     Active Substance: SPIRONOLACTONE
     Route: 065
  7. WARFARIN [Interacting]
     Active Substance: WARFARIN
     Indication: ATRIAL FIBRILLATION
     Route: 065
  8. SALBUTAMOL [Concomitant]
     Active Substance: ALBUTEROL
     Route: 065
  9. FLUCONAZOLE. [Suspect]
     Active Substance: FLUCONAZOLE
     Indication: ORAL CANDIDIASIS
     Dosage: DOSE 50 AND CUMULATIVE DOSE 100
     Route: 048
     Dates: start: 20140221, end: 20140224
  10. RAMIPRIL. [Concomitant]
     Active Substance: RAMIPRIL
     Route: 065

REACTIONS (15)
  - Back pain [Recovering/Resolving]
  - Pain in extremity [Recovering/Resolving]
  - Drug ineffective [Unknown]
  - Medication error [Unknown]
  - Drug interaction [Unknown]
  - Faeces discoloured [Recovering/Resolving]
  - International normalised ratio increased [Recovering/Resolving]
  - Drug effect increased [Recovering/Resolving]
  - Renal failure acute [Recovering/Resolving]
  - Gastritis [Recovering/Resolving]
  - Retroperitoneal haemorrhage [Recovering/Resolving]
  - Epistaxis [Recovering/Resolving]
  - Aphagia [Recovering/Resolving]
  - Haematemesis [Recovering/Resolving]
  - Dehydration [Recovering/Resolving]

NARRATIVE: CASE EVENT DATE: 201402
